FAERS Safety Report 17497185 (Version 1)
Quarter: 2020Q1

REPORT INFORMATION
  Report Type: Spontaneous
  Country: US (occurrence: US)
  Receive Date: 20200304
  Receipt Date: 20200304
  Transmission Date: 20200409
  Serious: No
  Sender: FDA-Public Use
  Company Number: None

PATIENT
  Sex: Female

DRUGS (2)
  1. FLUNISOLIDE NS SPR 0.025%25ML 25MCG [Suspect]
     Active Substance: FLUNISOLIDE
  2. FLUTICASONE PR NS SP 16GM RX 50MCG [Suspect]
     Active Substance: FLUTICASONE PROPIONATE

REACTIONS (1)
  - Drug ineffective [None]
